FAERS Safety Report 12231733 (Version 1)
Quarter: 2016Q2

REPORT INFORMATION
  Report Type: Report from Study
  Country: BR (occurrence: BR)
  Receive Date: 20160401
  Receipt Date: 20160401
  Transmission Date: 20160815
  Serious: Yes (Hospitalization, Other)
  Sender: FDA-Public Use
  Company Number: BR-ABBVIE-16K-020-1594589-00

PATIENT
  Age: 31 Year
  Sex: Female
  Weight: 70 kg

DRUGS (8)
  1. NEOSALDINA [Concomitant]
     Active Substance: CAFFEINE\ISOMETHEPTENE\METHIMAZOLE
     Indication: MIGRAINE
     Route: 048
  2. MESIGYNA [Concomitant]
     Indication: CONTRACEPTION
     Route: 030
  3. HUMIRA [Suspect]
     Active Substance: ADALIMUMAB
     Dosage: MAINTENANCE DOSE
     Route: 058
  4. DIPYRONE [Concomitant]
     Active Substance: DIPYRONE
     Indication: ABDOMINAL PAIN
     Route: 048
  5. BUSCOPAN [Concomitant]
     Active Substance: BUTYLSCOPOLAMINE BROMIDE
     Indication: PAIN
     Route: 048
  6. HUMIRA [Suspect]
     Active Substance: ADALIMUMAB
     Indication: CROHN^S DISEASE
     Dosage: LOADING DOSE, WEEK 0
     Route: 058
     Dates: start: 20151208, end: 20151208
  7. DIPYRONE [Concomitant]
     Active Substance: DIPYRONE
     Indication: PAIN
  8. HUMIRA [Suspect]
     Active Substance: ADALIMUMAB
     Dosage: LOADING DOSE, WEEK 1
     Route: 058
     Dates: start: 201512, end: 201512

REACTIONS (6)
  - Influenza [Recovering/Resolving]
  - Rhinitis [Recovering/Resolving]
  - Urinary tract infection [Recovered/Resolved]
  - Fistula [Unknown]
  - Weight decreased [Not Recovered/Not Resolved]
  - Myalgia [Recovering/Resolving]

NARRATIVE: CASE EVENT DATE: 201512
